FAERS Safety Report 16637739 (Version 1)
Quarter: 2019Q3

REPORT INFORMATION
  Report Type: Spontaneous
  Country: GB (occurrence: GB)
  Receive Date: 20190726
  Receipt Date: 20190726
  Transmission Date: 20191004
  Serious: Yes (Death, Other)
  Sender: FDA-Public Use
  Company Number: GB-PFIZER INC-2019316606

PATIENT
  Age: 68 Year
  Sex: Male

DRUGS (3)
  1. UPADACITINIB [Suspect]
     Active Substance: UPADACITINIB
     Dosage: 15 MG, UNK
     Route: 065
  2. METHOTREXATE SODIUM. [Suspect]
     Active Substance: METHOTREXATE SODIUM
     Indication: BASAL CELL CARCINOMA
     Dosage: UNK
     Route: 065
  3. UPADACITINIB [Suspect]
     Active Substance: UPADACITINIB
     Dosage: 30 MG, UNK
     Route: 065

REACTIONS (4)
  - Haemorrhagic stroke [Fatal]
  - Aneurysm ruptured [Fatal]
  - Myocardial infarction [Fatal]
  - Cerebrovascular accident [Fatal]
